FAERS Safety Report 11302030 (Version 1)
Quarter: 2015Q3

REPORT INFORMATION
  Report Type: Spontaneous
  Country: US (occurrence: None)
  Receive Date: 20150723
  Receipt Date: 20150723
  Transmission Date: 20151125
  Serious: No
  Sender: FDA-Public Use
  Company Number: None

PATIENT

DRUGS (20)
  1. FOLIC ACID. [Concomitant]
     Active Substance: FOLIC ACID
  2. MILK THISTLE [Concomitant]
     Active Substance: MILK THISTLE
  3. VITAMIN E [Concomitant]
     Active Substance: .ALPHA.-TOCOPHEROL
  4. IODINE [Concomitant]
     Active Substance: IODINE
  5. ZINC [Concomitant]
     Active Substance: ZINC\ZINC CHLORIDE
  6. VITAMIN D [Concomitant]
     Active Substance: CHOLECALCIFEROL
  7. OLIVE LEAF [Concomitant]
  8. SOVALDI [Concomitant]
     Active Substance: SOFOSBUVIR
  9. PAXIL CR [Concomitant]
     Active Substance: PAROXETINE HYDROCHLORIDE
  10. NAC [Concomitant]
  11. SELENIUM [Concomitant]
     Active Substance: SELENIUM
  12. VITAMIN B COMPLEX [Concomitant]
     Active Substance: CYANOCOBALAMIN\DEXPANTHENOL\NIACINAMIDE\PYRIDOXINE HYDROCHLORIDE\RIBOFLAVIN 5^-PHOSPHATE SODIUM\THIAMINE HYDROCHLORIDE\VITAMIN B COMPLEX
  13. VITAMIN C [Concomitant]
     Active Substance: ASCORBIC ACID
  14. FLAX SEED [Concomitant]
     Active Substance: FLAX SEED
  15. RIBASPHERE RIBAPAK [Suspect]
     Active Substance: RIBAVIRIN
     Indication: HEPATITIS C
     Dosage: 600 IN AM?400 IN PM
     Route: 048
     Dates: start: 20150402
  16. SOVALDI [Suspect]
     Active Substance: SOFOSBUVIR
     Indication: HEPATITIS C
     Route: 048
     Dates: start: 20150402
  17. BIOTIN [Concomitant]
     Active Substance: BIOTIN
  18. MAGNESIUM [Concomitant]
     Active Substance: MAGNESIUM
  19. TYLENOL [Concomitant]
     Active Substance: ACETAMINOPHEN
  20. SILYMARIN [Concomitant]
     Active Substance: MILK THISTLE

REACTIONS (2)
  - Mood swings [None]
  - Rash [None]
